FAERS Safety Report 9786616 (Version 1)
Quarter: 2013Q4

REPORT INFORMATION
  Report Type: Spontaneous
  Country: US (occurrence: US)
  Receive Date: 20131227
  Receipt Date: 20131227
  Transmission Date: 20140711
  Serious: Yes (Other)
  Sender: FDA-Public Use
  Company Number: CHPA2013US018760

PATIENT
  Age: 77 Year
  Sex: Male

DRUGS (3)
  1. 4 WAY SALINE MOISTURIZING MIST [Suspect]
     Route: 045
  2. EXCEDRIN MIGRAINE [Suspect]
     Indication: HEADACHE
     Dosage: 1 UNK, UNK
  3. EXCEDRIN MIGRAINE [Suspect]
     Indication: OFF LABEL USE

REACTIONS (4)
  - Cyst [Not Recovered/Not Resolved]
  - Concomitant disease aggravated [Not Recovered/Not Resolved]
  - Therapeutic response unexpected [Unknown]
  - Underdose [Unknown]
